FAERS Safety Report 23560392 (Version 3)
Quarter: 2024Q2

REPORT INFORMATION
  Report Type: Report from Study
  Country: CA (occurrence: CA)
  Receive Date: 20240223
  Receipt Date: 20240527
  Transmission Date: 20240716
  Serious: Yes (Other)
  Sender: FDA-Public Use
  Company Number: CA-TAKEDA-2024TUS015872

PATIENT
  Age: 74 Year
  Sex: Female

DRUGS (1)
  1. VEDOLIZUMAB [Suspect]
     Active Substance: VEDOLIZUMAB
     Indication: Crohn^s disease
     Dosage: 300 MILLIGRAM
     Route: 042
     Dates: start: 20240202, end: 20240402

REACTIONS (5)
  - Haematemesis [Unknown]
  - Mouth haemorrhage [Unknown]
  - Product dose omission issue [Unknown]
  - Therapy non-responder [Unknown]
  - Epistaxis [Unknown]

NARRATIVE: CASE EVENT DATE: 20240216
